FAERS Safety Report 6115167-7 (Version None)
Quarter: 2009Q1

REPORT INFORMATION
  Report Type: 
  Country: None (occurrence: None)
  Receive Date: 20090313
  Receipt Date: 20090311
  Transmission Date: 20090719
  Serious: Yes (Death)
  Sender: FDA-Public Use
  Company Number: JP-ASTRAZENECA-2009AP01824

PATIENT
  Age: 74 Year
  Sex: Male

DRUGS (8)
  1. CRESTOR [Suspect]
     Indication: HYPERCHOLESTEROLAEMIA
     Route: 048
     Dates: start: 20090307
  2. ALLEGRA [Concomitant]
     Dosage: DOSE UNKNOWN
     Route: 048
  3. THEO-DUR [Concomitant]
     Dosage: DOSE UNKNOWN
     Route: 048
  4. MUCOSOLVAN [Concomitant]
     Dosage: DOSE UNKNOWN
     Route: 048
  5. PERINDOPRIL ERBUMINE [Concomitant]
     Dosage: DOSE UNKNOWN
     Route: 048
  6. ZYLORIC [Concomitant]
     Dosage: DOSE UNKNOWN
     Route: 048
  7. PREMINENT [Concomitant]
     Dosage: DOSE UNKNOWN
     Route: 048
     Dates: start: 20090107
  8. GLYBURIDE [Concomitant]
     Dosage: DOSE UNKNOWN
     Route: 048

REACTIONS (1)
  - MYOCARDIAL INFARCTION [None]
